FAERS Safety Report 13535875 (Version 2)
Quarter: 2017Q3

REPORT INFORMATION
  Report Type: Spontaneous
  Country: US (occurrence: US)
  Receive Date: 20170511
  Receipt Date: 20170801
  Transmission Date: 20171127
  Serious: No
  Sender: FDA-Public Use
  Company Number: US-009507513-1704USA006496

PATIENT
  Age: 22 Year
  Sex: Female
  Weight: 114.74 kg

DRUGS (2)
  1. NEXPLANON [Suspect]
     Active Substance: ETONOGESTREL
     Dosage: DEVICE, UNK
     Route: 059
     Dates: start: 20160601, end: 20170606
  2. NEXPLANON [Suspect]
     Active Substance: ETONOGESTREL
     Dosage: UNK
     Route: 059
     Dates: start: 2017

REACTIONS (3)
  - Device breakage [Recovered/Resolved]
  - Complication associated with device [Recovered/Resolved]
  - No adverse event [Unknown]

NARRATIVE: CASE EVENT DATE: 20170412
